FAERS Safety Report 4752827-4 (Version None)
Quarter: 2005Q3

REPORT INFORMATION
  Report Type: 
  Country: None (occurrence: None)
  Receive Date: 20050823
  Receipt Date: 20050812
  Transmission Date: 20060218
  Serious: Yes (Other)
  Sender: FDA-Public Use
  Company Number: 2005115925

PATIENT
  Age: 89 Year
  Sex: Male
  Weight: 72.5755 kg

DRUGS (3)
  1. NORVASC [Suspect]
     Indication: BLOOD PRESSURE
     Dosage: 10 MG (1 IN 1 D),
  2. AVAPRO (IRBESARATN) [Concomitant]
  3. TOPROL-XL [Concomitant]

REACTIONS (2)
  - BACK PAIN [None]
  - DEMENTIA [None]
